FAERS Safety Report 10275643 (Version 1)
Quarter: 2014Q3

REPORT INFORMATION
  Report Type: Spontaneous
  Country: US (occurrence: None)
  Receive Date: 20140701
  Receipt Date: 20140701
  Transmission Date: 20150326
  Serious: Yes (Hospitalization, Other)
  Sender: FDA-Public Use
  Company Number: 2010S1004705

PATIENT
  Age: 75 Year
  Sex: Female
  Weight: 89.36 kg

DRUGS (6)
  1. FLEET NOS [Suspect]
     Active Substance: BISACODYL OR GLYCERIN OR MINERAL OIL OR SODIUM PHOSPHATE, DIBASIC\SODIUM PHOSPHATE, MONOBASIC
  2. XALATAN [Concomitant]
     Active Substance: LATANOPROST
  3. CRESTOR [Concomitant]
     Active Substance: ROSUVASTATIN CALCIUM
  4. PHOSPHO-SODA [Suspect]
     Active Substance: SODIUM PHOSPHATE, DIBASIC\SODIUM PHOSPHATE, MONOBASIC
     Indication: COLONOSCOPY
     Route: 048
  5. SPIRONOLACTONE (SPIRONOLACTONE) [Concomitant]
     Active Substance: SPIRONOLACTONE
  6. LISINOPRIL (LISINOPRIL) [Concomitant]
     Active Substance: LISINOPRIL

REACTIONS (24)
  - Injury [None]
  - Diarrhoea [None]
  - Colon adenoma [None]
  - Renal failure acute [None]
  - Malaise [None]
  - Nephrocalcinosis [None]
  - Hypokalaemia [None]
  - Constipation [None]
  - Blood phosphorus increased [None]
  - Dizziness [None]
  - Dyspepsia [None]
  - Gastrointestinal disorder [None]
  - Somnolence [None]
  - Nausea [None]
  - Confusional state [None]
  - Renal cyst [None]
  - Renal failure chronic [None]
  - Acute phosphate nephropathy [None]
  - Decreased appetite [None]
  - Renal tubular necrosis [None]
  - Iron deficiency anaemia [None]
  - Vomiting [None]
  - Hyperparathyroidism [None]
  - Dehydration [None]

NARRATIVE: CASE EVENT DATE: 20081106
